FAERS Safety Report 23755072 (Version 1)
Quarter: 2024Q2

REPORT INFORMATION
  Report Type: Spontaneous
  Country: BR (occurrence: BR)
  Receive Date: 20240418
  Receipt Date: 20240418
  Transmission Date: 20240716
  Serious: Yes (Death, Hospitalization, Other)
  Sender: FDA-Public Use
  Company Number: BR-BoehringerIngelheim-2024-BI-022508

PATIENT
  Age: 76 Year
  Sex: Male
  Weight: 37 kg

DRUGS (4)
  1. OFEV [Suspect]
     Active Substance: NINTEDANIB
     Indication: Idiopathic pulmonary fibrosis
     Route: 048
     Dates: start: 202205
  2. OFEV [Suspect]
     Active Substance: NINTEDANIB
     Dosage: 1 CAPSULE A DAY.
     Dates: start: 2023
  3. OFEV [Suspect]
     Active Substance: NINTEDANIB
     Dosage: 2 CAPSULES A DAY.
     Dates: end: 20240314
  4. RIVOTRIL [Concomitant]
     Active Substance: CLONAZEPAM
     Indication: Product used for unknown indication

REACTIONS (14)
  - Idiopathic pulmonary fibrosis [Fatal]
  - Multiple organ dysfunction syndrome [Fatal]
  - Dependence on oxygen therapy [Unknown]
  - Aspiration [Unknown]
  - Pneumonia [Unknown]
  - Depression [Unknown]
  - Diarrhoea [Recovered/Resolved]
  - Weight decreased [Unknown]
  - Asthenia [Unknown]
  - Constipation [Unknown]
  - Gastrooesophageal reflux disease [Unknown]
  - Condition aggravated [Unknown]
  - Dysgeusia [Unknown]
  - Decreased appetite [Unknown]

NARRATIVE: CASE EVENT DATE: 20230101
